FAERS Safety Report 18449922 (Version 1)
Quarter: 2020Q4

REPORT INFORMATION
  Report Type: Spontaneous
  Country: US (occurrence: US)
  Receive Date: 20201102
  Receipt Date: 20201102
  Transmission Date: 20210114
  Serious: Yes (Hospitalization)
  Sender: FDA-Public Use
  Company Number: US-PACIRA-202000495

PATIENT
  Age: 45 Year
  Sex: Female
  Weight: 62 kg

DRUGS (13)
  1. ANCEF [Concomitant]
     Active Substance: CEFAZOLIN SODIUM
     Indication: INFECTION PROPHYLAXIS
     Dosage: 2 G, DURING THE PREINDUCTION??TIMEFRAME
  2. 0.5% BUPIVACAINE HEAVY [Suspect]
     Active Substance: BUPIVACAINE
     Indication: TRANSVERSUS ABDOMINIS PLANE BLOCK
     Dosage: 10 ML WITH 10 ML OF EXPAREL, 1 ML OF DEXAMETHASONE AND 4 ML OF STERILE NORMAL SALINE
     Route: 065
  3. LIDOCAINE. [Concomitant]
     Active Substance: LIDOCAINE
     Indication: GENERAL ANAESTHESIA
     Dosage: 100 MG
  4. PROPOFOL. [Concomitant]
     Active Substance: PROPOFOL
     Indication: GENERAL ANAESTHESIA
     Dosage: 150 MG
  5. OFIRMEV [Concomitant]
     Active Substance: ACETAMINOPHEN
     Indication: PAIN MANAGEMENT
     Dosage: 1 G
  6. DEXAMETHASONE (4 MG/ML) [Concomitant]
     Indication: PROPHYLAXIS OF NAUSEA AND VOMITING
     Dosage: 4 MG AFTER INTUBATION
     Route: 065
  7. ONDANSETRON [Concomitant]
     Active Substance: ONDANSETRON
     Indication: PROPHYLAXIS OF NAUSEA AND VOMITING
     Dosage: 4 MG
  8. EXPAREL [Suspect]
     Active Substance: BUPIVACAINE
     Indication: TRANSVERSUS ABDOMINIS PLANE BLOCK
     Dosage: 10 ML WITH 10 ML OF 0.5% BUPIVACAINE, 1 ML OF DEXAMETHASONE AND 4 ML OF STERILE NORMAL SALINE
     Route: 065
  9. DEXAMETHASONE (4 MG/ML) [Concomitant]
     Indication: PROPHYLAXIS OF NAUSEA AND VOMITING
     Dosage: 1 ML WITH 10 ML OF EXPAREL, 10 ML OF 0.5% BUPIVACAINE AND 4 ML OF STERILE NORMAL SALINE
     Route: 065
  10. MIDAZOLAM. [Concomitant]
     Active Substance: MIDAZOLAM
     Indication: GENERAL ANAESTHESIA
     Dosage: 2 G, DURING THE PREINDUCTION??TIMEFRAME
  11. ROCURONIUM [Concomitant]
     Active Substance: ROCURONIUM BROMIDE
     Indication: GENERAL ANAESTHESIA
     Dosage: 50 MG
  12. STERILE NORMAL SALINE [Concomitant]
     Indication: TRANSVERSUS ABDOMINIS PLANE BLOCK
     Dosage: 4 ML WITH 10 ML OF EXPAREL, 10 ML OF 0.5% BUPIVACAINE AND 1 ML OF DEXAMETHASONE
     Route: 065
  13. FENTANYL. [Concomitant]
     Active Substance: FENTANYL
     Indication: GENERAL ANAESTHESIA
     Dosage: 50 ?G PREINDUCTION + 100 ?G INDUCTION

REACTIONS (3)
  - Off label use [Unknown]
  - Labelled drug-drug interaction medication error [Unknown]
  - Subcutaneous emphysema [Recovered/Resolved]
